FAERS Safety Report 9399857 (Version 1)
Quarter: 2013Q3

REPORT INFORMATION
  Report Type: Spontaneous
  Country: GB (occurrence: None)
  Receive Date: 20130710
  Receipt Date: 20130710
  Transmission Date: 20140515
  Serious: Yes (Other)
  Sender: FDA-Public Use
  Company Number: AUR-APL-2013-05653

PATIENT
  Age: 60 Year
  Sex: Male

DRUGS (5)
  1. RIBAVIRIN [Suspect]
     Indication: HEPATITIS C
     Dates: start: 201205
  2. INCIVO [Suspect]
     Indication: HEPATITIS C
     Dosage: 2250 MG (750 MG, 3 IN 1 D), ORAL
     Route: 048
     Dates: start: 201205
  3. INTERFERON ALFA [Suspect]
     Indication: HEPATITIS C
     Dosage: 100 MCG, 1 WEEK, UNKNOWN
     Dates: start: 201205
  4. ATAZANAVIR (ATAZANAVIR) [Concomitant]
  5. RALTEGRAVIR (RALTEGRAVIR) [Concomitant]

REACTIONS (5)
  - Alanine aminotransferase increased [None]
  - Rash [None]
  - Haemoglobin decreased [None]
  - Blood creatinine increased [None]
  - Fatigue [None]
